FAERS Safety Report 7434828-0 (Version None)
Quarter: 2011Q2

REPORT INFORMATION
  Report Type: 
  Country: None (occurrence: None)
  Receive Date: 20110425
  Receipt Date: 20110422
  Transmission Date: 20111010
  Serious: Yes (Life-Threatening, Hospitalization, Other)
  Sender: FDA-Public Use
  Company Number: UA-ASTRAZENECA-2011SE23103

PATIENT
  Age: 50 Year
  Sex: Female

DRUGS (2)
  1. SEROQUEL XR [Suspect]
     Dosage: 6000 MG
     Route: 048
     Dates: start: 20110421, end: 20110421
  2. VELAXIN [Suspect]
     Indication: DEPRESSION
     Dosage: 4200 MG
     Route: 048
     Dates: start: 20110421, end: 20110421

REACTIONS (2)
  - INTENTIONAL OVERDOSE [None]
  - SUICIDE ATTEMPT [None]
